FAERS Safety Report 8927420 (Version 6)
Quarter: 2013Q2

REPORT INFORMATION
  Report Type: Report from Study
  Country: BR (occurrence: BR)
  Receive Date: 20121127
  Receipt Date: 20130613
  Transmission Date: 20140414
  Serious: Yes (Hospitalization, Disabling, Other)
  Sender: FDA-Public Use
  Company Number: BR-ROCHE-798021

PATIENT
  Age: 56 Year
  Sex: Female
  Weight: 58 kg

DRUGS (8)
  1. ACTEMRA [Suspect]
     Indication: RHEUMATIC DISORDER
     Route: 042
  2. MABTHERA [Suspect]
     Indication: RHEUMATOID ARTHRITIS
     Route: 042
     Dates: start: 20121031
  3. MABTHERA [Suspect]
     Indication: OSTEOARTHRITIS
     Route: 042
     Dates: start: 20121108
  4. MABTHERA [Suspect]
     Route: 042
     Dates: start: 20130515
  5. ARAVA [Concomitant]
  6. PREDNISONE [Concomitant]
     Route: 065
  7. CALCIUM CARBONATE [Concomitant]
  8. TRILAX (BRAZIL) [Concomitant]
     Indication: PAIN

REACTIONS (26)
  - Fall [Unknown]
  - Femur fracture [Recovered/Resolved]
  - Femur fracture [Recovered/Resolved]
  - Foot deformity [Not Recovered/Not Resolved]
  - C-reactive protein increased [Unknown]
  - Drug ineffective [Unknown]
  - Hypoaesthesia [Recovered/Resolved]
  - Pruritus generalised [Recovered/Resolved]
  - Pain [Not Recovered/Not Resolved]
  - Local swelling [Not Recovered/Not Resolved]
  - Bone disorder [Not Recovered/Not Resolved]
  - Tongue paralysis [Unknown]
  - Local swelling [Not Recovered/Not Resolved]
  - Spinal pain [Not Recovered/Not Resolved]
  - Influenza [Unknown]
  - Paraesthesia [Unknown]
  - Local swelling [Not Recovered/Not Resolved]
  - Local swelling [Unknown]
  - Swelling [Unknown]
  - Tongue disorder [Unknown]
  - Tinnitus [Unknown]
  - Vomiting [Unknown]
  - Hypersensitivity [Unknown]
  - Erythema [Unknown]
  - Malaise [Unknown]
  - Abdominal pain upper [Unknown]
